FAERS Safety Report 9148263 (Version 1)
Quarter: 2013Q1

REPORT INFORMATION
  Report Type: Spontaneous
  Country: US (occurrence: None)
  Receive Date: 20130228
  Receipt Date: 20130228
  Transmission Date: 20140127
  Serious: Yes (Life-Threatening, Hospitalization)
  Sender: FDA-Public Use
  Company Number: None

PATIENT
  Age: 78 Year
  Sex: Female
  Weight: 79.38 kg

DRUGS (1)
  1. ZITHROMAX [Suspect]
     Indication: BRONCHITIS
     Dosage: 500 MG 1ST DAY ORAL ?250 MG 2ND DAY ORAL
     Route: 048
     Dates: start: 20130202, end: 20130203

REACTIONS (2)
  - Heart rate irregular [None]
  - Atrial fibrillation [None]
